FAERS Safety Report 13383777 (Version 2)
Quarter: 2017Q3

REPORT INFORMATION
  Report Type: Report from Study
  Country: CA (occurrence: CA)
  Receive Date: 20170329
  Receipt Date: 20170731
  Transmission Date: 20171127
  Serious: Yes (Other)
  Sender: FDA-Public Use
  Company Number: CA-JNJFOC-20170211803

PATIENT
  Age: 33 Year
  Sex: Female
  Weight: 58 kg

DRUGS (4)
  1. REMICADE [Suspect]
     Active Substance: INFLIXIMAB
     Indication: CROHN^S DISEASE
     Route: 042
     Dates: start: 20170502
  2. REMICADE [Suspect]
     Active Substance: INFLIXIMAB
     Indication: CROHN^S DISEASE
     Route: 042
     Dates: start: 2005
  3. REMICADE [Suspect]
     Active Substance: INFLIXIMAB
     Indication: CROHN^S DISEASE
     Route: 042
     Dates: start: 20170613
  4. REMICADE [Suspect]
     Active Substance: INFLIXIMAB
     Indication: CROHN^S DISEASE
     Dosage: THERAPY DURATION 1 HOUR 30 MINUTES
     Route: 042
     Dates: start: 20070601

REACTIONS (7)
  - Rectal discharge [Unknown]
  - Vomiting [Recovering/Resolving]
  - Product use issue [Unknown]
  - Gastrointestinal motility disorder [Recovering/Resolving]
  - Off label use [Unknown]
  - Anal abscess [Not Recovered/Not Resolved]
  - Bartholinitis [Unknown]

NARRATIVE: CASE EVENT DATE: 2005
